FAERS Safety Report 6959641-X (Version None)
Quarter: 2010Q3

REPORT INFORMATION
  Report Type: 
  Country: None (occurrence: None)
  Receive Date: 20100823
  Receipt Date: 20100510
  Transmission Date: 20110219
  Serious: No
  Sender: FDA-Public Use
  Company Number: 8053705

PATIENT
  Sex: Female

DRUGS (9)
  1. CIMZIA [Suspect]
     Indication: CROHN'S DISEASE
     Dosage: (400 MG 1X/2 WEEKS SUBCUTANEOUS)
     Route: 058
     Dates: start: 20090801, end: 20091019
  2. METOPROLOL [Concomitant]
  3. AMLODIPINE [Concomitant]
  4. SINGULAIR [Concomitant]
  5. FEXOFENADINE HCL [Concomitant]
  6. SYMBICORT [Concomitant]
  7. PULMICORT [Concomitant]
  8. MESALAMINE [Concomitant]
  9. ENTOCORT EC [Concomitant]

REACTIONS (2)
  - INFLUENZA LIKE ILLNESS [None]
  - NAUSEA [None]
